FAERS Safety Report 9890946 (Version 1)
Quarter: 2014Q1

REPORT INFORMATION
  Report Type: Spontaneous
  Country: AR (occurrence: None)
  Receive Date: 20140210
  Receipt Date: 20140210
  Transmission Date: 20141002
  Serious: Yes (Death, Hospitalization)
  Sender: FDA-Public Use
  Company Number: UTC-044443

PATIENT
  Age: 50 Year
  Sex: Female

DRUGS (2)
  1. REMODULIN (INJECTION FOR INFUSION) (TREPROSTINIL SODIUM) [Suspect]
     Indication: PULMONARY ARTERIAL HYPERTENSION
     Route: 058
  2. BOSENTAN (TABLET) [Concomitant]

REACTIONS (4)
  - Cardiac failure [None]
  - Gastroenteritis [None]
  - Hypovolaemia [None]
  - Rash [None]
